FAERS Safety Report 7575195-1 (Version None)
Quarter: 2011Q2

REPORT INFORMATION
  Report Type: 
  Country: None (occurrence: None)
  Receive Date: 20110627
  Receipt Date: 20110614
  Transmission Date: 20111010
  Serious: Yes (Hospitalization, Other)
  Sender: FDA-Public Use
  Company Number: US-ELI_LILLY_AND_COMPANY-US201105005064

PATIENT
  Age: 56 Year
  Sex: Female
  Weight: 81.633 kg

DRUGS (6)
  1. FORTEO [Suspect]
     Dosage: 20 UG, UNK
     Route: 065
  2. NORCO [Concomitant]
  3. HYDROCHLOROTHIAZIDE [Concomitant]
  4. FORTEO [Suspect]
     Indication: OSTEOPOROSIS
     Dosage: 20 UG, UNK
     Route: 065
     Dates: start: 20101001, end: 20110401
  5. PAXIL [Concomitant]
  6. LISINOPRIL [Concomitant]

REACTIONS (6)
  - FATIGUE [None]
  - DYSSTASIA [None]
  - HYPERTENSION [None]
  - HYPERCALCAEMIA [None]
  - TRANSIENT ISCHAEMIC ATTACK [None]
  - APHASIA [None]
